FAERS Safety Report 21583717 (Version 1)
Quarter: 2022Q4

REPORT INFORMATION
  Report Type: Spontaneous
  Country: US (occurrence: US)
  Receive Date: 20221111
  Receipt Date: 20221111
  Transmission Date: 20230112
  Serious: No
  Sender: FDA-Public Use
  Company Number: US-BEH-2022151493

PATIENT
  Age: 4 Year
  Sex: Male

DRUGS (2)
  1. IDELVION [Suspect]
     Active Substance: COAGULATION FACTOR IX RECOMBINANT HUMAN
     Indication: Factor IX deficiency
     Dosage: 935 INTERNATIONAL UNIT, QW
     Route: 042
     Dates: start: 20220524
  2. IDELVION [Suspect]
     Active Substance: COAGULATION FACTOR IX RECOMBINANT HUMAN
     Indication: Factor IX deficiency
     Dosage: 935 INTERNATIONAL UNIT, QW
     Route: 042
     Dates: start: 20220524

REACTIONS (1)
  - Limb injury [Unknown]
